FAERS Safety Report 9238007 (Version 2)
Quarter: 2013Q2

REPORT INFORMATION
  Report Type: Spontaneous
  Country: SI (occurrence: SI)
  Receive Date: 20130418
  Receipt Date: 20130508
  Transmission Date: 20140414
  Serious: Yes (Life-Threatening, Hospitalization)
  Sender: FDA-Public Use
  Company Number: SI-BAYER-2013-045759

PATIENT
  Age: 21 Year
  Sex: Female
  Weight: 98 kg

DRUGS (1)
  1. YAZ [Suspect]
     Indication: CONTRACEPTION
     Dosage: 1 DF, QD
     Route: 048
     Dates: start: 201010, end: 20130117

REACTIONS (8)
  - Deep vein thrombosis [Recovered/Resolved]
  - Pain in extremity [Recovered/Resolved]
  - Local swelling [Recovered/Resolved]
  - Erythema [Recovered/Resolved]
  - Mobility decreased [Recovered/Resolved]
  - Pelvic venous thrombosis [Recovered/Resolved]
  - Pelvic pain [Recovered/Resolved]
  - Back pain [Recovered/Resolved]
